FAERS Safety Report 24809145 (Version 2)
Quarter: 2025Q2

REPORT INFORMATION
  Report Type: Spontaneous
  Country: US (occurrence: US)
  Receive Date: 20250106
  Receipt Date: 20250523
  Transmission Date: 20250717
  Serious: Yes (Other)
  Sender: LA JOLLA PHARMACEUTICAL
  Company Number: US-LA JOLLA PHARMA, LLC-2024-INNO-US000042

PATIENT

DRUGS (1)
  1. GIAPREZA [Suspect]
     Active Substance: ANGIOTENSIN II
     Indication: Septic shock
     Route: 041
     Dates: start: 2023

REACTIONS (1)
  - Thrombosis [Unknown]

NARRATIVE: CASE EVENT DATE: 20230101
